FAERS Safety Report 25181996 (Version 2)
Quarter: 2025Q2

REPORT INFORMATION
  Report Type: Spontaneous
  Country: US (occurrence: US)
  Receive Date: 20250410
  Receipt Date: 20250418
  Transmission Date: 20250716
  Serious: Yes (Hospitalization, Other)
  Sender: ACCORD
  Company Number: US-Accord-478101

PATIENT
  Age: 53 Year
  Sex: Female

DRUGS (20)
  1. DOCETAXEL [Interacting]
     Active Substance: DOCETAXEL
     Indication: Invasive ductal breast carcinoma
     Dosage: CYCLE 1
  2. CARBOPLATIN [Interacting]
     Active Substance: CARBOPLATIN
     Indication: Invasive ductal breast carcinoma
     Dosage: CYCLE 1, AREA UNDER THE CURVE (AUC) OF 6
  3. PERTUZUMAB [Interacting]
     Active Substance: PERTUZUMAB
     Indication: Invasive ductal breast carcinoma
     Dosage: LOADING DOSE OF 840 MG FOLLOWED BY 420 MG
  4. TRASTUZUMAB [Interacting]
     Active Substance: TRASTUZUMAB
     Indication: Invasive ductal breast carcinoma
     Dosage: CYCLE 1, LOADING DOSE OF 8 MG/KG FOLLOWED BY 6 MG/KG
  5. APREPITANT [Concomitant]
     Active Substance: APREPITANT
     Indication: Premedication
  6. DEXAMETHASONE [Concomitant]
     Active Substance: DEXAMETHASONE
     Indication: Premedication
  7. PALONOSETRON HYDROCHLORIDE [Concomitant]
     Active Substance: PALONOSETRON HYDROCHLORIDE
     Indication: Premedication
  8. PEGFILGRASTIM [Concomitant]
     Active Substance: PEGFILGRASTIM
  9. DOCETAXEL [Interacting]
     Active Substance: DOCETAXEL
     Indication: Hormone receptor positive breast cancer
     Dosage: CYCLE 1
  10. CARBOPLATIN [Interacting]
     Active Substance: CARBOPLATIN
     Indication: HER2 positive breast cancer
     Dosage: CYCLE 1, AREA UNDER THE CURVE (AUC) OF 6
  11. CARBOPLATIN [Interacting]
     Active Substance: CARBOPLATIN
     Indication: Hormone receptor positive breast cancer
     Dosage: CYCLE 1, AREA UNDER THE CURVE (AUC) OF 6
  12. PERTUZUMAB [Interacting]
     Active Substance: PERTUZUMAB
     Indication: Hormone receptor positive breast cancer
     Dosage: LOADING DOSE OF 840 MG FOLLOWED BY 420 MG
  13. TRASTUZUMAB [Interacting]
     Active Substance: TRASTUZUMAB
     Indication: Hormone receptor positive breast cancer
     Dosage: CYCLE 1, LOADING DOSE OF 8 MG/KG FOLLOWED BY 6 MG/KG
  14. CARBOPLATIN [Interacting]
     Active Substance: CARBOPLATIN
     Indication: Hormone receptor positive breast cancer
     Dosage: CYCLE 1, AREA UNDER THE CURVE (AUC) OF 6
  15. DOCETAXEL [Interacting]
     Active Substance: DOCETAXEL
     Indication: HER2 positive breast cancer
     Dosage: CYCLE 1
  16. PERTUZUMAB [Interacting]
     Active Substance: PERTUZUMAB
     Indication: HER2 positive breast cancer
     Dosage: LOADING DOSE OF 840 MG FOLLOWED BY 420 MG
  17. TRASTUZUMAB [Interacting]
     Active Substance: TRASTUZUMAB
     Indication: HER2 positive breast cancer
     Dosage: CYCLE 1, LOADING DOSE OF 8 MG/KG FOLLOWED BY 6 MG/KG
  18. DOCETAXEL [Interacting]
     Active Substance: DOCETAXEL
     Indication: Hormone receptor positive breast cancer
     Dosage: CYCLE 1
  19. PERTUZUMAB [Interacting]
     Active Substance: PERTUZUMAB
     Indication: Hormone receptor positive breast cancer
     Dosage: LOADING DOSE OF 840 MG FOLLOWED BY 420 MG
  20. TRASTUZUMAB [Interacting]
     Active Substance: TRASTUZUMAB
     Indication: Hormone receptor positive breast cancer
     Dosage: CYCLE 1, LOADING DOSE OF 8 MG/KG FOLLOWED BY 6 MG/KG

REACTIONS (3)
  - Cystitis haemorrhagic [Recovered/Resolved]
  - Drug interaction [Unknown]
  - Off label use [Unknown]
